FAERS Safety Report 6437529-0 (Version None)
Quarter: 2009Q4

REPORT INFORMATION
  Report Type: 
  Country: None (occurrence: None)
  Receive Date: 20091112
  Receipt Date: 20091103
  Transmission Date: 20100525
  Serious: Yes (Hospitalization, Other)
  Sender: FDA-Public Use
  Company Number: JP-PFIZER INC-2009278373

PATIENT
  Age: 19 Year
  Sex: Male
  Weight: 46 kg

DRUGS (3)
  1. LIDOCAINE 2% [Suspect]
     Indication: SURGERY
  2. AMPICILLIN AND AMPICILLIN SODIUM AND AMPICILLIN TRIHYDRATE [Suspect]
  3. HEPARIN [Suspect]
     Indication: SURGERY
     Route: 042

REACTIONS (5)
  - ANAPHYLACTIC SHOCK [None]
  - ANOSMIA [None]
  - DYSPNOEA [None]
  - LARYNGEAL OEDEMA [None]
  - LIP OEDEMA [None]
